FAERS Safety Report 12607324 (Version 3)
Quarter: 2016Q4

REPORT INFORMATION
  Report Type: Report from Study
  Country: US (occurrence: US)
  Receive Date: 20160729
  Receipt Date: 20161020
  Transmission Date: 20170207
  Serious: Yes (Life-Threatening, Hospitalization, Other)
  Sender: FDA-Public Use
  Company Number: US-MALLINCKRODT-T201603126

PATIENT
  Age: 51 Year
  Sex: Male
  Weight: 145 kg

DRUGS (11)
  1. ALPRAZOLAM. [Suspect]
     Active Substance: ALPRAZOLAM
     Indication: AGITATION
     Dosage: 2 MG, PRN
     Route: 048
     Dates: start: 20160207, end: 20160209
  2. ATIVAN [Suspect]
     Active Substance: LORAZEPAM
     Indication: AGITATION
     Dosage: 1 MG, TWICE
     Route: 042
     Dates: start: 20160210, end: 20160210
  3. IRON [Concomitant]
     Active Substance: IRON
     Indication: NEPHROGENIC ANAEMIA
     Route: 065
  4. HYDROCODONE/ACETAMINOPHEN [Suspect]
     Active Substance: ACETAMINOPHEN\HYDROCODONE
     Indication: ARTHRALGIA
     Dosage: 10/325 MG ONCE
     Route: 048
     Dates: start: 20160207, end: 20160207
  5. EPOETIN ALFA [Suspect]
     Active Substance: ERYTHROPOIETIN
     Indication: NEPHROGENIC ANAEMIA
     Dosage: 8200 IU IV
     Route: 042
     Dates: start: 20151218
  6. HALOPERIDOL LACTATE. [Suspect]
     Active Substance: HALOPERIDOL LACTATE
     Indication: AGITATION
     Dosage: 5 MG, SINGLE
     Route: 042
     Dates: start: 20160210, end: 20160210
  7. HYDROMORPHONE HYDROCHLORIDE. [Suspect]
     Active Substance: HYDROMORPHONE HYDROCHLORIDE
     Indication: ARTHRALGIA
     Dosage: 1 MG, Q4H PRN
     Route: 042
     Dates: start: 20160207, end: 20160210
  8. MORPHINE SULFATE. [Suspect]
     Active Substance: MORPHINE SULFATE
     Indication: ARTHRALGIA
     Dosage: 2 MG, PRN
     Route: 042
     Dates: start: 20160207, end: 20160209
  9. EPOETIN ALFA [Suspect]
     Active Substance: ERYTHROPOIETIN
     Dosage: 5200 IU IV
     Route: 042
     Dates: start: 20151226
  10. HALOPERIDOL LACTATE. [Suspect]
     Active Substance: HALOPERIDOL LACTATE
     Dosage: 10 MG, SINGLE
     Route: 042
     Dates: start: 20160210, end: 20160210
  11. TRAMADOL. [Suspect]
     Active Substance: TRAMADOL
     Indication: ARTHRALGIA
     Dosage: 50 MG, PRN
     Route: 048
     Dates: start: 20160208, end: 20160208

REACTIONS (8)
  - Chest pain [Unknown]
  - Atrial flutter [Unknown]
  - Pneumonia [Recovering/Resolving]
  - Diabetic foot infection [Not Recovered/Not Resolved]
  - Atrioventricular block [Unknown]
  - Respiratory arrest [Recovered/Resolved]
  - Osteomyelitis [Recovered/Resolved]
  - Agitation [Unknown]

NARRATIVE: CASE EVENT DATE: 201602
